FAERS Safety Report 20006280 (Version 1)
Quarter: 2021Q4

REPORT INFORMATION
  Report Type: Other
  Country: RU (occurrence: RU)
  Receive Date: 20211028
  Receipt Date: 20211028
  Transmission Date: 20220303
  Serious: Yes (Other)
  Sender: FDA-Public Use
  Company Number: RU-ROCHE-2944072

PATIENT

DRUGS (7)
  1. RITUXIMAB [Suspect]
     Active Substance: RITUXIMAB
     Indication: Stem cell transplant
     Dosage: IN DAY -1.
     Route: 065
  2. TOCILIZUMAB [Suspect]
     Active Substance: TOCILIZUMAB
     Indication: Stem cell transplant
     Dosage: IN DAY -1
     Route: 042
  3. TREOSULFAN [Suspect]
     Active Substance: TREOSULFAN
     Indication: Stem cell transplant
     Dosage: 42 G/M2
     Route: 065
  4. THIOTEPA [Suspect]
     Active Substance: THIOTEPA
     Indication: Stem cell transplant
     Route: 065
  5. FLUDARABINE [Suspect]
     Active Substance: FLUDARABINE PHOSPHATE
     Indication: Stem cell transplant
     Route: 065
  6. ABATACEPT [Suspect]
     Active Substance: ABATACEPT
     Indication: Stem cell transplant
     Dosage: DAYS -1, +7, +14, AND +28 SINCE HSCT
     Route: 042
  7. BORTEZOMIB [Suspect]
     Active Substance: BORTEZOMIB
     Indication: Stem cell transplant
     Dosage: DAYS -5, -2, +2, AND +5,
     Route: 065

REACTIONS (4)
  - Graft versus host disease [Unknown]
  - Cytomegalovirus chorioretinitis [Unknown]
  - Pneumonia cytomegaloviral [Unknown]
  - Cytomegalovirus colitis [Unknown]
